FAERS Safety Report 4447166-5 (Version None)
Quarter: 2004Q3

REPORT INFORMATION
  Report Type: 
  Country: None (occurrence: None)
  Receive Date: 20040813
  Receipt Date: 20040603
  Transmission Date: 20050211
  Serious: No
  Sender: FDA-Public Use
  Company Number: S04-USA-03861-01

PATIENT
  Age: 69 Year
  Sex: Female

DRUGS (2)
  1. NAMENDA [Suspect]
     Indication: AMNESIA
     Dates: start: 20040514
  2. HIGH BLOOD PRESSURE MEDICATION [Concomitant]

REACTIONS (1)
  - CONFUSIONAL STATE [None]
